FAERS Safety Report 21348048 (Version 1)
Quarter: 2022Q3

REPORT INFORMATION
  Report Type: Spontaneous
  Country: FR (occurrence: FR)
  Receive Date: 20220919
  Receipt Date: 20220919
  Transmission Date: 20221026
  Serious: Yes (Other)
  Sender: FDA-Public Use
  Company Number: FR-AFSSAPS-AN20221950

PATIENT
  Age: 22 Year
  Sex: Male
  Weight: 75 kg

DRUGS (2)
  1. TRAMADOL [Suspect]
     Active Substance: TRAMADOL
     Indication: Pain
     Dosage: 0 DOSAGE FORM
     Route: 048
     Dates: start: 20220715, end: 20220715
  2. HALDOL [Suspect]
     Active Substance: HALOPERIDOL
     Indication: Product administration error
     Dosage: 2 DOSAGE FORM
     Route: 048
     Dates: start: 20220715, end: 20220715

REACTIONS (3)
  - Dyskinesia [Recovered/Resolved]
  - Salivary hypersecretion [Recovered/Resolved]
  - Product administration error [Recovered/Resolved]

NARRATIVE: CASE EVENT DATE: 20220715
